FAERS Safety Report 7356628-2 (Version None)
Quarter: 2011Q1

REPORT INFORMATION
  Report Type: 
  Country: None (occurrence: None)
  Receive Date: 20110316
  Receipt Date: 20110304
  Transmission Date: 20110831
  Serious: Yes (Other)
  Sender: FDA-Public Use
  Company Number: PHHY2011RO18253

PATIENT
  Sex: Male

DRUGS (1)
  1. VALSARTAN, AMLODIPINE [Suspect]
     Indication: HYPERTENSION
     Dosage: 160/5 MG

REACTIONS (1)
  - ATRIAL FLUTTER [None]
